FAERS Safety Report 5106385-5 (Version None)
Quarter: 2006Q3

REPORT INFORMATION
  Report Type: 
  Country: None (occurrence: None)
  Receive Date: 20060918
  Receipt Date: 20060709
  Transmission Date: 20061208
  Serious: Yes (Hospitalization, Other)
  Sender: FDA-Public Use
  Company Number: PHEH2006US08928

PATIENT
  Age: 86 Year
  Sex: Female

DRUGS (5)
  1. EXJADE [Suspect]
     Indication: HAEMOSIDEROSIS
     Dosage: UNK, UNK
     Route: 048
     Dates: start: 20060523, end: 20060705
  2. CELEBREX [Concomitant]
     Indication: ARTHRITIS
     Dosage: 200 MG, QD
  3. DIGOXIN [Concomitant]
     Indication: TACHYCARDIA
     Dosage: 0.125 MG, QD
  4. L-THYROXINE [Concomitant]
     Indication: HYPOTHYROIDISM
     Dosage: 0.112 MG, QD
  5. PARNATE /UNK/ [Concomitant]
     Indication: DEPRESSION
     Dosage: 10 MG, TID

REACTIONS (12)
  - ALANINE AMINOTRANSFERASE INCREASED [None]
  - ANAEMIA [None]
  - ASPARTATE AMINOTRANSFERASE INCREASED [None]
  - ASTHENIA [None]
  - BLOOD ALKALINE PHOSPHATASE INCREASED [None]
  - BLOOD BILIRUBIN INCREASED [None]
  - DISEASE PROGRESSION [None]
  - HAEMOGLOBIN DECREASED [None]
  - JAUNDICE [None]
  - LIVER FUNCTION TEST ABNORMAL [None]
  - MYELODYSPLASTIC SYNDROME [None]
  - PYREXIA [None]
